FAERS Safety Report 15623121 (Version 1)
Quarter: 2018Q4

REPORT INFORMATION
  Report Type: Spontaneous
  Country: US (occurrence: US)
  Receive Date: 20181115
  Receipt Date: 20181115
  Transmission Date: 20190205
  Serious: No
  Sender: FDA-Public Use
  Company Number: US-SUNOVION-2018SUN004452

PATIENT
  Sex: Male
  Weight: 124.72 kg

DRUGS (4)
  1. VITAMIN D [Concomitant]
     Active Substance: CHOLECALCIFEROL
     Dosage: UNK
  2. LONHALA MAGNAIR [Suspect]
     Active Substance: GLYCOPYRROLATE
     Indication: CHRONIC OBSTRUCTIVE PULMONARY DISEASE
     Dosage: 25 ?G, BID
     Route: 055
     Dates: start: 20180915
  3. ALBUTEROL. [Concomitant]
     Active Substance: ALBUTEROL
     Dosage: UNK
  4. BUSPAR [Concomitant]
     Active Substance: BUSPIRONE HYDROCHLORIDE
     Indication: ANXIETY
     Dosage: 15 MG, UNK
     Dates: start: 201804

REACTIONS (2)
  - Dysuria [Not Recovered/Not Resolved]
  - Erythema [Not Recovered/Not Resolved]
